FAERS Safety Report 10504927 (Version 2)
Quarter: 2014Q4

REPORT INFORMATION
  Report Type: Spontaneous
  Country: IT (occurrence: IT)
  Receive Date: 20141008
  Receipt Date: 20141015
  Transmission Date: 20150528
  Serious: Yes (Other)
  Sender: FDA-Public Use
  Company Number: IT-WATSON-2014-21465

PATIENT
  Age: 54 Year
  Sex: Male
  Weight: 84 kg

DRUGS (4)
  1. ALIMTA [Suspect]
     Active Substance: PEMETREXED DISODIUM
     Indication: LUNG ADENOCARCINOMA
     Dosage: 1000 MG, CYCLICAL
     Route: 042
     Dates: start: 20140508, end: 20140714
  2. LUCEN                              /01479302/ [Concomitant]
     Indication: PRODUCT USED FOR UNKNOWN INDICATION
     Dosage: UNK
     Route: 065
  3. RIOPAN                             /00141701/ [Concomitant]
     Indication: PRODUCT USED FOR UNKNOWN INDICATION
     Dosage: UNK
     Route: 065
  4. CARBOPLATIN (UNKNOWN) [Suspect]
     Active Substance: CARBOPLATIN
     Indication: LUNG ADENOCARCINOMA
     Dosage: 630 MG, CYCLICAL
     Route: 042
     Dates: start: 20140508, end: 20140714

REACTIONS (4)
  - Anaemia [Recovering/Resolving]
  - Thrombocytopenia [Not Recovered/Not Resolved]
  - Leukopenia [Recovering/Resolving]
  - Neutropenia [Recovering/Resolving]

NARRATIVE: CASE EVENT DATE: 20140526
